FAERS Safety Report 9567429 (Version 1)
Quarter: 2013Q3

REPORT INFORMATION
  Report Type: Spontaneous
  Country: US (occurrence: US)
  Receive Date: 20130930
  Receipt Date: 20130930
  Transmission Date: 20140515
  Serious: No
  Sender: FDA-Public Use
  Company Number: US-AMGEN-USASP2012081105

PATIENT
  Age: 41 Year
  Sex: Female
  Weight: 63.49 kg

DRUGS (3)
  1. ENBREL [Suspect]
     Indication: RHEUMATOID ARTHRITIS
     Dosage: 50 MG, QWK
     Route: 058
  2. SULPHAZINE                         /00076401/ [Concomitant]
     Dosage: 500 MG, UNK
     Route: 048
  3. IBUPROFEN [Concomitant]
     Dosage: 200 MG, UNK
     Route: 048

REACTIONS (1)
  - Headache [Unknown]
